FAERS Safety Report 5683316-0 (Version None)
Quarter: 2008Q1

REPORT INFORMATION
  Report Type: 
  Country: None (occurrence: None)
  Receive Date: 20080326
  Receipt Date: 20080318
  Transmission Date: 20080703
  Serious: Yes (Other)
  Sender: FDA-Public Use
  Company Number: JPI-P-002397

PATIENT
  Sex: Female

DRUGS (14)
  1. XYREM [Suspect]
     Indication: CATAPLEXY
     Dosage: 9 GM (4.5 GM, STARTED XYREMIN EITHER 2004 OR 2005), ORAL
     Route: 048
     Dates: start: 20070101, end: 20070101
  2. XYREM [Suspect]
     Indication: NARCOLEPSY
     Dosage: 9 GM (4.5 GM, STARTED XYREMIN EITHER 2004 OR 2005), ORAL
     Route: 048
     Dates: start: 20070101, end: 20070101
  3. XYREM [Suspect]
     Indication: SOMNOLENCE
     Dosage: 9 GM (4.5 GM, STARTED XYREMIN EITHER 2004 OR 2005), ORAL
     Route: 048
     Dates: start: 20070101, end: 20070101
  4. XYREM [Suspect]
     Indication: CATAPLEXY
     Dosage: 9 GM (4.5 GM, STARTED XYREMIN EITHER 2004 OR 2005), ORAL
     Route: 048
     Dates: start: 20070101, end: 20070101
  5. XYREM [Suspect]
     Indication: NARCOLEPSY
     Dosage: 9 GM (4.5 GM, STARTED XYREMIN EITHER 2004 OR 2005), ORAL
     Route: 048
     Dates: start: 20070101, end: 20070101
  6. XYREM [Suspect]
     Indication: SOMNOLENCE
     Dosage: 9 GM (4.5 GM, STARTED XYREMIN EITHER 2004 OR 2005), ORAL
     Route: 048
     Dates: start: 20070101, end: 20070101
  7. XYREM [Suspect]
     Indication: CATAPLEXY
     Dosage: 9 GM (4.5 GM, STARTED XYREMIN EITHER 2004 OR 2005), ORAL
     Route: 048
     Dates: start: 20070101, end: 20070101
  8. XYREM [Suspect]
     Indication: NARCOLEPSY
     Dosage: 9 GM (4.5 GM, STARTED XYREMIN EITHER 2004 OR 2005), ORAL
     Route: 048
     Dates: start: 20070101, end: 20070101
  9. XYREM [Suspect]
     Indication: SOMNOLENCE
     Dosage: 9 GM (4.5 GM, STARTED XYREMIN EITHER 2004 OR 2005), ORAL
     Route: 048
     Dates: start: 20070101, end: 20070101
  10. XYREM [Suspect]
     Indication: CATAPLEXY
     Dosage: 9 GM (4.5 GM, STARTED XYREMIN EITHER 2004 OR 2005), ORAL
     Route: 048
     Dates: start: 20070101
  11. XYREM [Suspect]
     Indication: NARCOLEPSY
     Dosage: 9 GM (4.5 GM, STARTED XYREMIN EITHER 2004 OR 2005), ORAL
     Route: 048
     Dates: start: 20070101
  12. XYREM [Suspect]
     Indication: SOMNOLENCE
     Dosage: 9 GM (4.5 GM, STARTED XYREMIN EITHER 2004 OR 2005), ORAL
     Route: 048
     Dates: start: 20070101
  13. MODAFINIL [Suspect]
     Indication: SOMNOLENCE
     Dosage: 80 MG
     Dates: start: 20070101
  14. AMPHETAMINE SULFATE [Concomitant]

REACTIONS (9)
  - ABASIA [None]
  - AGITATION [None]
  - DRUG DOSE OMISSION [None]
  - DYSPNOEA [None]
  - EYE SWELLING [None]
  - FEELING JITTERY [None]
  - JOINT SWELLING [None]
  - LIP SWELLING [None]
  - MEMORY IMPAIRMENT [None]
